FAERS Safety Report 17908255 (Version 3)
Quarter: 2021Q4

REPORT INFORMATION
  Report Type: Report from Study
  Country: DE (occurrence: DE)
  Receive Date: 20200617
  Receipt Date: 20211018
  Transmission Date: 20220303
  Serious: Yes (Life-Threatening, Hospitalization, Other)
  Sender: FDA-Public Use
  Company Number: DE-002147023-PHHY2016DE067553

PATIENT
  Age: 77 Year
  Sex: Male
  Weight: 95 kg

DRUGS (22)
  1. ATORVASTATIN CALCIUM [Suspect]
     Active Substance: ATORVASTATIN CALCIUM
     Indication: Dyslipidaemia
     Dosage: 40 OT, UNK
     Route: 048
     Dates: start: 201501
  2. COSENTYX [Suspect]
     Active Substance: SECUKINUMAB
     Indication: Psoriasis
     Dosage: 300 MG, PER APPLICATION
     Route: 065
     Dates: start: 20151125
  3. COSENTYX [Suspect]
     Active Substance: SECUKINUMAB
     Dosage: 300 MG, PER APPLICATION
     Route: 065
     Dates: start: 20151202
  4. COSENTYX [Suspect]
     Active Substance: SECUKINUMAB
     Dosage: 300 MG, PER APPLICATION
     Route: 065
     Dates: start: 20151209
  5. COSENTYX [Suspect]
     Active Substance: SECUKINUMAB
     Dosage: 300 MG, PER APPLICATION
     Route: 065
     Dates: start: 20151216
  6. COSENTYX [Suspect]
     Active Substance: SECUKINUMAB
     Dosage: 300 MG, PER APPLICATION
     Route: 065
     Dates: start: 20151222
  7. COSENTYX [Suspect]
     Active Substance: SECUKINUMAB
     Dosage: 300 MG, PER APPLICATION
     Route: 065
     Dates: start: 20160120
  8. COSENTYX [Suspect]
     Active Substance: SECUKINUMAB
     Dosage: 300 MG, PER APPLICATION
     Route: 065
     Dates: start: 20160224
  9. COSENTYX [Suspect]
     Active Substance: SECUKINUMAB
     Dosage: 300 MG, PER APPLICATION
     Route: 065
     Dates: start: 20160323
  10. COSENTYX [Suspect]
     Active Substance: SECUKINUMAB
     Dosage: 300 MG, PER APPLICATION
     Route: 065
     Dates: start: 20160421, end: 20160421
  11. COSENTYX [Suspect]
     Active Substance: SECUKINUMAB
     Dosage: 300 MG, QMO
     Route: 058
     Dates: end: 201605
  12. ASPIRIN [Concomitant]
     Active Substance: ASPIRIN
     Dosage: 1 DF, QD
     Route: 048
     Dates: start: 20190416
  13. PANTOPRAZOLE SODIUM [Concomitant]
     Active Substance: PANTOPRAZOLE SODIUM
     Dosage: UNK (ENTERIC COATED TABLET)
     Route: 048
  14. BISOPROLOL [Concomitant]
     Active Substance: BISOPROLOL
     Dosage: 0.5 DF, QD (1-0-0)
     Route: 065
     Dates: start: 20190416
  15. CLOPIDOGREL [Concomitant]
     Active Substance: CLOPIDOGREL BISULFATE
     Dosage: 1 DF, QD (1-0-0)
     Route: 048
     Dates: start: 20190416, end: 20191016
  16. SIMVASTATIN [Concomitant]
     Active Substance: SIMVASTATIN
     Dosage: 1 DF, QD (0-0-0-1)
     Route: 048
     Dates: start: 20190416
  17. CRESOL\UREA [Concomitant]
     Active Substance: CRESOL\UREA
     Indication: Dermatosis
     Dosage: UNK
     Route: 061
     Dates: start: 201501, end: 20151125
  18. FUSIDATE SODIUM [Concomitant]
     Active Substance: FUSIDATE SODIUM
     Indication: Dermatosis
     Dosage: UNK
     Route: 061
     Dates: start: 201501, end: 20151125
  19. CANDESARTAN [Concomitant]
     Active Substance: CANDESARTAN
     Indication: Hypertension
     Dosage: 32 MG, UNK
     Route: 048
     Dates: start: 201501
  20. CANDESARTAN CILEXETIL [Concomitant]
     Active Substance: CANDESARTAN CILEXETIL
     Dosage: 1 DF, QD (1-0-0)
     Route: 048
     Dates: start: 20190416
  21. PANTOZAL [Concomitant]
     Dosage: 1 DF, QD (1-0-0)
     Route: 065
     Dates: start: 20190416
  22. PANTOZAL [Concomitant]
     Dosage: 1 DF, QD (1-0-0)
     Route: 065
     Dates: start: 20200908

REACTIONS (12)
  - Desmoplastic melanoma [Not Recovered/Not Resolved]
  - Coronary artery disease [Recovered/Resolved]
  - Metastatic malignant melanoma [Not Recovered/Not Resolved]
  - Metastases to lung [Recovering/Resolving]
  - Basal cell carcinoma [Recovered/Resolved]
  - Coronary artery stenosis [Recovered/Resolved]
  - Chronic kidney disease [Recovering/Resolving]
  - Squamous cell carcinoma of skin [Recovered/Resolved]
  - Neoplasm progression [Not Recovered/Not Resolved]
  - Actinic keratosis [Unknown]
  - Myalgia [Unknown]
  - Psoriasis [Unknown]

NARRATIVE: CASE EVENT DATE: 20160426
